FAERS Safety Report 10171268 (Version 1)
Quarter: 2014Q2

REPORT INFORMATION
  Report Type: Spontaneous
  Country: US (occurrence: None)
  Receive Date: 20140507
  Receipt Date: 20140507
  Transmission Date: 20141212
  Serious: Yes (Other)
  Sender: FDA-Public Use
  Company Number: E2090-02824-SPO-US

PATIENT
  Sex: Female

DRUGS (3)
  1. ZONEGRAN [Suspect]
     Indication: CONVULSION
     Route: 048
  2. LEVETIRACETAM (LEVETIRACETAM) [Suspect]
     Indication: CONVULSION
  3. NEURONTIN (GABAPENTIN) [Suspect]
     Indication: CONVULSION

REACTIONS (1)
  - Convulsion [None]
